FAERS Safety Report 12883474 (Version 4)
Quarter: 2017Q4

REPORT INFORMATION
  Report Type: Report from Study
  Country: US (occurrence: US)
  Receive Date: 20161025
  Receipt Date: 20171004
  Transmission Date: 20180320
  Serious: Yes (Other)
  Sender: FDA-Public Use
  Company Number: US-ACTELION-A-US2016-144184

PATIENT
  Age: 65 Year
  Sex: Female
  Weight: 74.38 kg

DRUGS (3)
  1. NIVOLUMAB [Concomitant]
     Active Substance: NIVOLUMAB
  2. ADCIRCA [Concomitant]
     Active Substance: TADALAFIL
  3. OPSUMIT [Suspect]
     Active Substance: MACITENTAN
     Indication: PULMONARY HYPERTENSION
     Dosage: 10 MG, QD
     Route: 048
     Dates: start: 20141107

REACTIONS (5)
  - Syncope [Unknown]
  - Hypotension [Unknown]
  - Bladder cancer [Unknown]
  - Stress [Unknown]
  - Renal cancer [Unknown]

NARRATIVE: CASE EVENT DATE: 20170725
